FAERS Safety Report 5082852-8 (Version None)
Quarter: 2006Q3

REPORT INFORMATION
  Report Type: 
  Country: None (occurrence: None)
  Receive Date: 20060817
  Receipt Date: 20060808
  Transmission Date: 20061208
  Serious: Yes (Death, Hospitalization, Other)
  Sender: FDA-Public Use
  Company Number: CA-ABBOTT-06P-028-0339797-00

PATIENT
  Age: 48 Year
  Sex: Male

DRUGS (3)
  1. CYCLOSPORINE [Suspect]
     Indication: LIVER TRANSPLANT
     Dates: start: 19950101
  2. INSULIN [Concomitant]
     Indication: DIABETES MELLITUS INSULIN-DEPENDENT
     Dates: start: 19960101
  3. WARFARIN SODIUM [Concomitant]
     Indication: HEPATIC ARTERY STENOSIS
     Dates: start: 19990101

REACTIONS (5)
  - CEREBRAL HAEMORRHAGE [None]
  - HYPERTENSION [None]
  - LEUKOENCEPHALOPATHY [None]
  - THROMBOTIC MICROANGIOPATHY [None]
  - THROMBOTIC THROMBOCYTOPENIC PURPURA [None]
